FAERS Safety Report 9445501 (Version 2)
Quarter: 2013Q3

REPORT INFORMATION
  Report Type: Spontaneous
  Country: NL (occurrence: NL)
  Receive Date: 20130807
  Receipt Date: 20130916
  Transmission Date: 20140515
  Serious: Yes (Other)
  Sender: FDA-Public Use
  Company Number: NL-BAYER-2013-093309

PATIENT
  Age: 48 Year
  Sex: Male
  Weight: 73 kg

DRUGS (7)
  1. KOGENATE BAYER [Suspect]
     Indication: FACTOR VIII DEFICIENCY
     Dosage: 1000 IU, UNK
     Dates: start: 20130624
  2. KOGENATE BAYER [Suspect]
     Indication: FACTOR VIII DEFICIENCY
     Dosage: 1000 IU, BID
     Dates: start: 20130626, end: 20130626
  3. KOGENATE BAYER [Suspect]
     Indication: FACTOR VIII DEFICIENCY
     Dosage: 1000 IU, TID
     Dates: start: 20130714, end: 20130714
  4. KOGENATE BAYER [Suspect]
     Indication: FACTOR VIII DEFICIENCY
     Dosage: 1000 IU, QD
     Dates: start: 20130715, end: 20130731
  5. HELIXATE NEXGEN [Suspect]
     Indication: FACTOR VIII DEFICIENCY
     Dosage: 1000 IU, Q3WK
     Dates: end: 20130624
  6. PARACETAMOL [Concomitant]
     Dosage: 4 G, QD
     Dates: start: 20130714
  7. CODEINE W/PARACETAMOL [Concomitant]
     Dosage: 8 DF, 500 MG / 10 MG, QD
     Dates: start: 20130730

REACTIONS (4)
  - Joint swelling [None]
  - Haemorrhage [None]
  - Haemarthrosis [None]
  - Haemarthrosis [None]
